FAERS Safety Report 24194166 (Version 2)
Quarter: 2025Q4

REPORT INFORMATION
  Report Type: Report from Study
  Country: US (occurrence: US)
  Receive Date: 20240809
  Receipt Date: 20251007
  Transmission Date: 20260117
  Serious: Yes (Hospitalization, Other)
  Sender: ABBVIE
  Company Number: US-ABBVIE-5863329

PATIENT
  Age: 66 Year
  Sex: Female

DRUGS (3)
  1. HUMIRA [Suspect]
     Active Substance: ADALIMUMAB
     Indication: Rheumatoid arthritis
     Dosage: DOSE FORM : SOLUTION FOR INJECTION IN PRE-FILLED PEN
     Route: 058
     Dates: start: 2017, end: 2024
  2. HUMIRA [Suspect]
     Active Substance: ADALIMUMAB
     Indication: Sarcoidosis
     Dosage: DOSE FORM : SOLUTION FOR INJECTION IN PRE-FILLED PEN
     Route: 058
     Dates: start: 2024
  3. HUMIRA [Suspect]
     Active Substance: ADALIMUMAB
     Dosage: DISCONTINUED FOR TWO MONTHS,?DOSE FORM : SOLUTION FOR INJECTION IN PRE-FILLED PEN
     Route: 058

REACTIONS (8)
  - Hiatus hernia [Not Recovered/Not Resolved]
  - Oesophageal food impaction [Recovered/Resolved]
  - Dysphagia [Not Recovered/Not Resolved]
  - Sarcoidosis [Not Recovered/Not Resolved]
  - Oesophageal food impaction [Recovered/Resolved]
  - Off label use [Not Recovered/Not Resolved]
  - Rash [Not Recovered/Not Resolved]
  - Granuloma [Unknown]

NARRATIVE: CASE EVENT DATE: 20230101
